FAERS Safety Report 16336777 (Version 1)
Quarter: 2019Q2

REPORT INFORMATION
  Report Type: Spontaneous
  Country: US (occurrence: US)
  Receive Date: 20190520
  Receipt Date: 20190520
  Transmission Date: 20190711
  Serious: Yes (Hospitalization)
  Sender: FDA-Public Use
  Company Number: None

PATIENT
  Age: 34 Year
  Sex: Female

DRUGS (1)
  1. STELARA [Suspect]
     Active Substance: USTEKINUMAB
     Indication: CROHN^S DISEASE
     Dosage: ?          OTHER FREQUENCY:EVERY 8 WEEKS;?
     Route: 058
     Dates: start: 20180518

REACTIONS (9)
  - Infection [None]
  - Abdominal pain [None]
  - Inappropriate schedule of product administration [None]
  - Weight abnormal [None]
  - Skin exfoliation [None]
  - Dry skin [None]
  - Condition aggravated [None]
  - Crohn^s disease [None]
  - Diarrhoea [None]

NARRATIVE: CASE EVENT DATE: 20190326
